FAERS Safety Report 4953509-6 (Version None)
Quarter: 2006Q1

REPORT INFORMATION
  Report Type: 
  Country: None (occurrence: None)
  Receive Date: 20060324
  Receipt Date: 20060315
  Transmission Date: 20060701
  Serious: Yes (Hospitalization)
  Sender: FDA-Public Use
  Company Number: JP-ROCHE-440688

PATIENT
  Age: 68 Year
  Sex: Male

DRUGS (13)
  1. PANALDINE [Suspect]
     Indication: CEREBRAL INFARCTION
     Route: 048
     Dates: start: 20060215, end: 20060227
  2. GRAMALIL [Concomitant]
     Indication: DELIRIUM
     Dosage: 25 TID GIVEN FOR TWO DAYS, THEN 50 MG TID
     Route: 048
     Dates: start: 20060209
  3. HALCION [Concomitant]
     Indication: INSOMNIA
     Route: 048
     Dates: start: 20060211
  4. VEGETAMIN B [Concomitant]
     Indication: DELIRIUM
     Route: 048
     Dates: start: 20060211
  5. ASPIRIN [Concomitant]
     Indication: CEREBRAL INFARCTION
     Route: 048
     Dates: start: 20060215
  6. GASTER [Concomitant]
     Indication: GASTRIC ULCER
     Route: 048
     Dates: start: 20060215, end: 20060227
  7. DEPAS [Concomitant]
  8. LENDORMIN [Concomitant]
  9. PURSENNID [Concomitant]
  10. HALOPERIDOL [Concomitant]
  11. ACTIVASE [Concomitant]
     Dosage: REPORTED AS ACTIVACIN
  12. RADICUT [Concomitant]
  13. HEPARIN [Concomitant]
     Dosage: REPORTED AS CAPROCIN

REACTIONS (3)
  - HEPATIC FUNCTION ABNORMAL [None]
  - PYREXIA [None]
  - THROMBOCYTOPENIA [None]
